FAERS Safety Report 21128955 (Version 2)
Quarter: 2022Q3

REPORT INFORMATION
  Report Type: Report from Study
  Country: BE (occurrence: None)
  Receive Date: 20220725
  Receipt Date: 20220802
  Transmission Date: 20221027
  Serious: Yes (Hospitalization)
  Sender: FDA-Public Use
  Company Number: BE-ROCHE-3144653

PATIENT
  Age: 73 Year
  Sex: Female

DRUGS (4)
  1. TRASTUZUMAB [Suspect]
     Active Substance: TRASTUZUMAB
     Indication: Breast cancer
     Dosage: MOST RECENT DOSE OF TRASTUZUMAB BEFORE SAE WAS ON 19/MAY/2022
     Route: 058
     Dates: start: 20220225
  2. PERTUZUMAB [Suspect]
     Active Substance: PERTUZUMAB
     Indication: Breast cancer
     Dosage: MOST RECENT DOSE OF PERTUZUMAB BEFORE SAE WAS ON 19/MAY/2022
     Route: 065
     Dates: start: 20220225
  3. PALBOCICLIB [Suspect]
     Active Substance: PALBOCICLIB
     Indication: Breast cancer
     Dosage: MOST RECENT DOSE OF PALBOCICLIB BEFORE SAE WAS ON 30/MAY/2022
     Route: 065
     Dates: start: 20220225
  4. LETROZOLE [Suspect]
     Active Substance: LETROZOLE
     Indication: Breast cancer
     Dosage: MOST RECENT DOSE OF LETROZOLE BEFORE SAE WAS ON 17/JUN/2022
     Route: 065
     Dates: start: 20220225

REACTIONS (1)
  - Mastitis [Recovered/Resolved]

NARRATIVE: CASE EVENT DATE: 20220718
